FAERS Safety Report 12647360 (Version 1)
Quarter: 2016Q3

REPORT INFORMATION
  Report Type: Spontaneous
  Country: US (occurrence: None)
  Receive Date: 20160811
  Receipt Date: 20160811
  Transmission Date: 20161109
  Serious: No
  Sender: FDA-Public Use
  Company Number: None

PATIENT
  Age: 81 Year
  Sex: Female
  Weight: 70.76 kg

DRUGS (1)
  1. PIPERACILLIN AND TAZOBACTAM [Suspect]
     Active Substance: PIPERACILLIN SODIUM\TAZOBACTAM SODIUM
     Indication: ABSCESS
     Route: 042
     Dates: start: 20160804, end: 20160804

REACTIONS (4)
  - Discomfort [None]
  - Infusion related reaction [None]
  - Pruritus [None]
  - Face oedema [None]

NARRATIVE: CASE EVENT DATE: 20160804
